FAERS Safety Report 4775088-9 (Version None)
Quarter: 2005Q3

REPORT INFORMATION
  Report Type: 
  Country: None (occurrence: None)
  Receive Date: 20050920
  Receipt Date: 20050913
  Transmission Date: 20060218
  Serious: Yes (Hospitalization, Other)
  Sender: FDA-Public Use
  Company Number: ESWYE702630MAY05

PATIENT
  Age: 51 Year
  Sex: Male

DRUGS (9)
  1. RAPAMUNE [Suspect]
     Indication: PROPHYLAXIS AGAINST TRANSPLANT REJECTION
     Dosage: 6 MG 1X PER 1 DAY
     Route: 048
     Dates: start: 20050425, end: 20050506
  2. RAPAMUNE [Suspect]
     Indication: PROPHYLAXIS AGAINST TRANSPLANT REJECTION
     Dosage: 6 MG 1X PER 1 DAY
     Route: 048
     Dates: start: 20050507
  3. ZENAPAX [Concomitant]
  4. PREDNISONE [Concomitant]
  5. PROGRAF [Concomitant]
  6. FUROSEMIDE [Concomitant]
  7. INSULIN [Concomitant]
  8. ARANESP [Concomitant]
  9. SEPTRA [Concomitant]

REACTIONS (5)
  - IMPAIRED HEALING [None]
  - POSTOPERATIVE INFECTION [None]
  - RENAL IMPAIRMENT [None]
  - RENAL TUBULAR NECROSIS [None]
  - VESICAL FISTULA [None]
